FAERS Safety Report 5058408-X (Version None)
Quarter: 2006Q3

REPORT INFORMATION
  Report Type: 
  Country: None (occurrence: None)
  Receive Date: 20060721
  Receipt Date: 20031106
  Transmission Date: 20061208
  Serious: Yes (Hospitalization, Other)
  Sender: FDA-Public Use
  Company Number: US-ABBOTT-03P-163-0240414-00

PATIENT
  Age: 34 Year
  Sex: Male

DRUGS (9)
  1. VALPROIC ACID [Suspect]
     Indication: SCHIZOPHRENIA
  2. VALPROIC ACID [Suspect]
  3. CLOZAPINE [Concomitant]
  4. BENZTROPEINE [Concomitant]
  5. HALOPERIDOL [Concomitant]
     Indication: SCHIZOPHRENIA
  6. HALOPERIDOL [Concomitant]
  7. OLANZAPINE [Concomitant]
  8. PROPRANOLOL [Concomitant]
  9. DIPHENHYDRAMINE HCL [Concomitant]

REACTIONS (7)
  - COUGH [None]
  - EOSINOPHIL COUNT INCREASED [None]
  - LETHARGY [None]
  - MENTAL STATUS CHANGES [None]
  - PULMONARY EOSINOPHILIA [None]
  - PYREXIA [None]
  - RASH MACULAR [None]
